FAERS Safety Report 4900802-9 (Version None)
Quarter: 2006Q1

REPORT INFORMATION
  Report Type: 
  Country: None (occurrence: None)
  Receive Date: 20060201
  Receipt Date: 20060117
  Transmission Date: 20060701
  Serious: Yes (Other)
  Sender: FDA-Public Use
  Company Number: AZAUK200600025

PATIENT
  Age: 69 Year
  Sex: Male
  Weight: 91.3 kg

DRUGS (5)
  1. AZACITIDINE (AZACITIDINE) (INJECTION) [Suspect]
     Indication: MYELODYSPLASTIC SYNDROME
     Dosage: 38 MG/M2 (DAILY X 7 DAYS), SUBCUTANEOUS
     Route: 058
     Dates: start: 20050629, end: 20050705
  2. NIFEDIPINE LONG ACTING (NIFEDIPINE) [Concomitant]
  3. BENDROPFLUAZIDE (BENDROFLUMETHIAZIDE) [Concomitant]
  4. ATORVASTATIN CALCIUM [Concomitant]
  5. LISINOPRIL [Concomitant]

REACTIONS (2)
  - COOMBS NEGATIVE HAEMOLYTIC ANAEMIA [None]
  - HYPERBILIRUBINAEMIA [None]
